FAERS Safety Report 25472469 (Version 4)
Quarter: 2025Q4

REPORT INFORMATION
  Report Type: Spontaneous
  Country: EU (occurrence: EU)
  Receive Date: 20250624
  Receipt Date: 20251204
  Transmission Date: 20260118
  Serious: Yes (Hospitalization, Other)
  Sender: NOVARTIS
  Company Number: EU-002147023-NVSC2025ES084375

PATIENT
  Age: 64 Year
  Sex: Male

DRUGS (18)
  1. EVEROLIMUS [Suspect]
     Active Substance: EVEROLIMUS
     Indication: Pleural effusion
     Dosage: UNK (FOR 6 MONTH)
     Route: 065
  2. EVEROLIMUS [Suspect]
     Active Substance: EVEROLIMUS
     Indication: Antiviral prophylaxis
     Dosage: UNK
     Route: 065
     Dates: start: 202404
  3. TACROLIMUS [Suspect]
     Active Substance: TACROLIMUS
     Indication: Heart transplant
     Dosage: UNK (FOR 6 MONTHS) (STRENGTH: 1 MG / 1 EA)
     Route: 065
  4. TACROLIMUS [Suspect]
     Active Substance: TACROLIMUS
     Dosage: UNK
     Route: 065
  5. MYCOPHENOLATE MOFETIL [Suspect]
     Active Substance: MYCOPHENOLATE MOFETIL
     Indication: Heart transplant
     Dosage: UNK
     Route: 065
  6. BASILIXIMAB [Suspect]
     Active Substance: BASILIXIMAB
     Indication: Heart transplant
     Dosage: UNK
     Route: 065
  7. BASILIXIMAB [Suspect]
     Active Substance: BASILIXIMAB
     Dosage: UNK
     Route: 065
  8. VALGANCICLOVIR [Suspect]
     Active Substance: VALGANCICLOVIR
     Indication: Antiviral prophylaxis
     Dosage: UNK, START DATE: ??-APR-2023
     Route: 065
     Dates: start: 202304
  9. VALGANCICLOVIR [Suspect]
     Active Substance: VALGANCICLOVIR
     Indication: Antiviral prophylaxis
     Dosage: UNK; VGCV FOR 6 MONTHS, START DATE: ??-APR-2024
     Route: 065
     Dates: start: 202404
  10. FOSCARNET [Suspect]
     Active Substance: FOSCARNET
     Indication: Antiviral prophylaxis
     Dosage: UNK, START DATE: ??-JUL-2023
     Route: 065
     Dates: start: 202307
  11. FOSCARNET [Suspect]
     Active Substance: FOSCARNET
     Indication: Renal impairment
     Dosage: UNK, START DATE: ??-APR-2024
     Route: 065
     Dates: start: 202404
  12. FOSCARNET [Suspect]
     Active Substance: FOSCARNET
     Indication: Renal impairment
  13. MARIBAVIR [Suspect]
     Active Substance: MARIBAVIR
     Indication: Antiviral prophylaxis
     Dosage: UNK, START DATE: ??-JUL-2023
     Route: 065
     Dates: start: 202307
  14. MARIBAVIR [Suspect]
     Active Substance: MARIBAVIR
     Dosage: UNK, START DATE: ??-AUG-2023
     Route: 065
     Dates: start: 202308
  15. MARIBAVIR [Suspect]
     Active Substance: MARIBAVIR
     Dosage: UNK, START DATE: ??-MAR-2024
     Route: 065
     Dates: start: 202403
  16. GANCICLOVIR [Suspect]
     Active Substance: GANCICLOVIR
     Indication: Antiviral prophylaxis
     Dosage: UNK, START DATE: ??-JUL-2023
     Route: 065
     Dates: start: 202307
  17. GANCICLOVIR [Suspect]
     Active Substance: GANCICLOVIR
     Indication: Antiviral prophylaxis
     Dosage: UNK, START DATE: ??-AUG-2023
     Route: 065
     Dates: start: 202308
  18. ECULIZUMAB [Concomitant]
     Active Substance: ECULIZUMAB
     Indication: Thrombotic microangiopathy
     Dosage: UNK
     Route: 065

REACTIONS (8)
  - Pneumonia [Unknown]
  - Thrombotic microangiopathy [Recovering/Resolving]
  - Condition aggravated [Recovering/Resolving]
  - Pancytopenia [Unknown]
  - Drug resistance [Unknown]
  - Pleural effusion [Unknown]
  - Cytomegalovirus infection [Not Recovered/Not Resolved]
  - Therapeutic product effect incomplete [Unknown]

NARRATIVE: CASE EVENT DATE: 20230701
